FAERS Safety Report 18020718 (Version 1)
Quarter: 2020Q3

REPORT INFORMATION
  Report Type: Spontaneous
  Country: CN (occurrence: CN)
  Receive Date: 20200714
  Receipt Date: 20200714
  Transmission Date: 20201103
  Serious: Yes (Hospitalization, Congenital Anomaly, Other)
  Sender: FDA-Public Use
  Company Number: CN-GLAXOSMITHKLINE-CN2020GSK120074

PATIENT
  Sex: Male

DRUGS (2)
  1. LAMOTRIGINE. [Suspect]
     Active Substance: LAMOTRIGINE
     Indication: SEIZURE
     Dosage: UNK
     Route: 064
  2. VALPROMIDE [Suspect]
     Active Substance: VALPROMIDE
     Indication: SEIZURE
     Dosage: UNK
     Route: 064

REACTIONS (12)
  - Xanthogranuloma [Unknown]
  - Skin lesion [Unknown]
  - Astrocytoma, low grade [Unknown]
  - Tuberous sclerosis complex [Unknown]
  - Pulmonary mass [Unknown]
  - Rhabdomyoma [Recovering/Resolving]
  - Gene mutation [Unknown]
  - Brain scan abnormal [Unknown]
  - Intracranial mass [Unknown]
  - Foetal exposure during pregnancy [Unknown]
  - Skin mass [Recovered/Resolved]
  - Macule [Not Recovered/Not Resolved]

NARRATIVE: CASE EVENT DATE: 201802
